FAERS Safety Report 19545936 (Version 1)
Quarter: 2021Q3

REPORT INFORMATION
  Report Type: Spontaneous
  Country: FR (occurrence: FR)
  Receive Date: 20210714
  Receipt Date: 20210714
  Transmission Date: 20211014
  Serious: Yes (Hospitalization, Other)
  Sender: FDA-Public Use
  Company Number: FR-GRANULES-FR-2021GRALIT00406

PATIENT
  Age: 14 Year
  Sex: Female

DRUGS (2)
  1. ACETAMINOPHEN. [Suspect]
     Active Substance: ACETAMINOPHEN
     Indication: PRODUCT USED FOR UNKNOWN INDICATION
     Dosage: ROUGHLY 100 G
     Route: 065
  2. N?ACETYLCYSTEINE [Interacting]
     Active Substance: ACETYLCYSTEINE
     Indication: SUPPORTIVE CARE
     Route: 065

REACTIONS (4)
  - Toxicity to various agents [Unknown]
  - Nervous system disorder [Unknown]
  - Overdose [Unknown]
  - Vomiting [Unknown]
